FAERS Safety Report 5975914 (Version 6)
Quarter: 2020Q3

REPORT INFORMATION
  Report Type: Report from Study
  Country: US (occurrence: US)
  Receive Date: 20060203
  Receipt Date: 20200327
  Transmission Date: 20201105
  Serious: Yes (Life-Threatening, Other)
  Sender: FDA-Public Use
  Company Number: US-JNJFOC-20060200328

PATIENT
  Age: 62 Year
  Sex: Male
  Weight: 94.1 kg

DRUGS (7)
  1. RHINOCORT AQUA [Concomitant]
     Active Substance: BUDESONIDE
     Indication: SINUSITIS
  2. SALINE [Concomitant]
     Active Substance: SODIUM CHLORIDE
     Indication: RHINITIS
     Route: 045
     Dates: start: 20060105
  3. PRILOSEC [Concomitant]
     Active Substance: OMEPRAZOLE MAGNESIUM
     Indication: GASTROOESOPHAGEAL REFLUX DISEASE
  4. KPHOS [Concomitant]
     Indication: HYPOPHOSPHATAEMIA
     Route: 048
     Dates: start: 20040602
  5. CISAPRIDE [Suspect]
     Active Substance: CISAPRIDE
     Indication: GASTROOESOPHAGEAL REFLUX DISEASE
     Route: 048
     Dates: start: 20010613, end: 20060116
  6. METROGEL [Concomitant]
     Active Substance: METRONIDAZOLE
     Indication: ROSACEA
     Route: 061
     Dates: start: 20010829
  7. RHINOCORT AQUA [Concomitant]
     Active Substance: BUDESONIDE
     Indication: RHINITIS
     Route: 045
     Dates: start: 20051115

REACTIONS (1)
  - Electrocardiogram QT prolonged [Recovered/Resolved]

NARRATIVE: CASE EVENT DATE: 20060110
